FAERS Safety Report 9417347 (Version 1)
Quarter: 2013Q3

REPORT INFORMATION
  Report Type: Spontaneous
  Country: US (occurrence: US)
  Receive Date: 20130724
  Receipt Date: 20130724
  Transmission Date: 20140515
  Serious: No
  Sender: FDA-Public Use
  Company Number: US-MYLANLABS-2013S1008734

PATIENT
  Age: 42 Year
  Sex: Male
  Weight: 79.38 kg

DRUGS (2)
  1. BUPROPION HYDROCHLORIDE EXTENDED-RELEASE TABLETS USP (XL) [Suspect]
     Indication: FATIGUE
     Route: 048
     Dates: start: 20130417, end: 20130417
  2. BUPROPION HYDROCHLORIDE EXTENDED-RELEASE TABLETS USP (XL) [Suspect]
     Indication: OFF LABEL USE
     Route: 048
     Dates: start: 20130417, end: 20130417

REACTIONS (3)
  - Myalgia [Recovered/Resolved]
  - Muscular weakness [Not Recovered/Not Resolved]
  - Paraesthesia [Not Recovered/Not Resolved]
